FAERS Safety Report 6196549-4 (Version None)
Quarter: 2009Q2

REPORT INFORMATION
  Report Type: 
  Country: None (occurrence: None)
  Receive Date: 20090520
  Receipt Date: 20090403
  Transmission Date: 20091009
  Serious: Yes (Hospitalization, Other)
  Sender: FDA-Public Use
  Company Number: US-JNJFOC-20090200350

PATIENT
  Sex: Male

DRUGS (1)
  1. LEVAQUIN [Suspect]
     Indication: RESPIRATORY TRACT INFECTION
     Route: 048

REACTIONS (5)
  - ACUTE RESPIRATORY FAILURE [None]
  - CATARACT [None]
  - HYPOXIA [None]
  - MENTAL STATUS CHANGES [None]
  - TOXIC EPIDERMAL NECROLYSIS [None]
